FAERS Safety Report 12317731 (Version 2)
Quarter: 2016Q2

REPORT INFORMATION
  Report Type: Report from Study
  Country: US (occurrence: US)
  Receive Date: 20160429
  Receipt Date: 20160512
  Transmission Date: 20160815
  Serious: Yes (Other)
  Sender: FDA-Public Use
  Company Number: US-BEH-2016062000

PATIENT
  Age: 86 Year
  Sex: Male
  Weight: 75 kg

DRUGS (3)
  1. KCENTRA [Suspect]
     Active Substance: COAGULATION FACTOR IX HUMAN\COAGULATION FACTOR VII HUMAN\COAGULATION FACTOR X HUMAN\PROTEIN C\PROTEIN S HUMAN\PROTHROMBIN
     Indication: CEREBRAL HAEMORRHAGE
     Dates: start: 20150103
  2. VITAMIN K [Suspect]
     Active Substance: PHYTONADIONE
     Route: 042
     Dates: start: 20150103, end: 20150103
  3. KCENTRA [Suspect]
     Active Substance: COAGULATION FACTOR IX HUMAN\COAGULATION FACTOR VII HUMAN\COAGULATION FACTOR X HUMAN\PROTEIN C\PROTEIN S HUMAN\PROTHROMBIN
     Indication: CEREBRAL HAEMORRHAGE
     Dates: start: 20150103

REACTIONS (2)
  - Deep vein thrombosis [Unknown]
  - Myocardial infarction [Unknown]
